FAERS Safety Report 6818649-5 (Version None)
Quarter: 2010Q3

REPORT INFORMATION
  Report Type: 
  Country: None (occurrence: None)
  Receive Date: 20100706
  Receipt Date: 20090224
  Transmission Date: 20110219
  Serious: No
  Sender: FDA-Public Use
  Company Number: US-PFIZER INC-2009175300

PATIENT
  Sex: Female
  Weight: 83.9 kg

DRUGS (2)
  1. ZMAX [Suspect]
     Indication: SINUSITIS
     Dosage: UNK
     Dates: start: 20090224, end: 20090224
  2. CHOLESTEROL- AND TRIGLYCERIDE REDUCERS [Concomitant]
     Indication: BLOOD CHOLESTEROL INCREASED
     Dosage: UNK

REACTIONS (3)
  - ABDOMINAL PAIN UPPER [None]
  - HYPERSENSITIVITY [None]
  - MALAISE [None]
